FAERS Safety Report 8360390-4 (Version None)
Quarter: 2012Q2

REPORT INFORMATION
  Report Type: 
  Country: None (occurrence: None)
  Receive Date: 20120515
  Receipt Date: 20120508
  Transmission Date: 20120825
  Serious: Yes (Other)
  Sender: FDA-Public Use
  Company Number: US-BAYER-2012-045881

PATIENT
  Age: 63 Year
  Sex: Male
  Weight: 84 kg

DRUGS (8)
  1. SPIRONOLACTONE [Concomitant]
  2. LASIX [Concomitant]
  3. CARVEDILOL [Concomitant]
  4. LISINOPRIL [Concomitant]
  5. SPIRIVA [Concomitant]
     Dosage: HE USES IN BREATHING INHALER
  6. ASPIRIN [Concomitant]
  7. POTASSIUM CHLORIDE [Concomitant]
  8. RID 1-2-3 SYSTEM [Suspect]
     Indication: LICE INFESTATION
     Dosage: 1 DF, UNK
     Route: 061
     Dates: start: 20120501

REACTIONS (12)
  - SWELLING FACE [None]
  - EYE SWELLING [None]
  - FACE OEDEMA [None]
  - RASH PAPULAR [None]
  - SECRETION DISCHARGE [None]
  - APPLICATION SITE VESICLES [None]
  - PRURITUS [None]
  - HYPERSENSITIVITY [None]
  - DRY SKIN [None]
  - APPLICATION SITE PRURITUS [None]
  - LOCALISED OEDEMA [None]
  - RASH MACULAR [None]
